FAERS Safety Report 7638515-5 (Version None)
Quarter: 2011Q3

REPORT INFORMATION
  Report Type: 
  Country: None (occurrence: None)
  Receive Date: 20110727
  Receipt Date: 20110713
  Transmission Date: 20111222
  Serious: Yes (Hospitalization, Other)
  Sender: FDA-Public Use
  Company Number: PHHY2011GB64425

PATIENT
  Age: 77 Year
  Sex: Male

DRUGS (12)
  1. ISOSORBIDE DINITRATE [Suspect]
     Indication: HYPERTENSION
     Route: 048
  2. DEXTROSE [Concomitant]
  3. OMEPRAZOLE [Concomitant]
  4. DESONIDE [Concomitant]
  5. METOPROLOL TARTRATE [Suspect]
     Indication: HYPERTENSION
     Route: 048
  6. ROSUVASTATIN CALCIUM [Suspect]
     Indication: CORONARY ARTERY DISEASE
     Dosage: UNK
     Route: 048
     Dates: start: 20090420
  7. ASPIRIN [Concomitant]
  8. KETOCONAZOLE [Concomitant]
  9. AMLODIPINE BESYLATE [Concomitant]
  10. CLOPIDOGREL [Concomitant]
  11. LISINOPRIL [Suspect]
     Indication: HYPERTENSION
     Dosage: UNK
     Route: 048
     Dates: start: 20090415
  12. NITROGLYCERIN [Concomitant]

REACTIONS (1)
  - SYNCOPE [None]
